FAERS Safety Report 8786777 (Version 1)
Quarter: 2012Q4

REPORT INFORMATION
  Report Type: 
  Country: US (occurrence: US)
  Receive Date: 20120914
  Receipt Date: 20120914
  Transmission Date: 20130627
  Serious: Yes (Other)
  Sender: FDA-Public Use
  Company Number: US-ABBOTT-12P-163-0978281-00

PATIENT
  Sex: Male
  Weight: 90.8 kg

DRUGS (4)
  1. ANDROGEL [Suspect]
     Indication: ANDROGEN DEFICIENCY
     Dosage: 2 pumps, one each shoulder
  2. ANDROGEL [Suspect]
     Indication: ANDROGEN DEFICIENCY
  3. ZANAFLEX [Concomitant]
     Indication: MUSCLE SPASMS
  4. KLONOPIN [Concomitant]
     Indication: PRODUCT USED FOR UNKNOWN INDICATION

REACTIONS (5)
  - Bone erosion [Recovered/Resolved]
  - Fracture [Recovered/Resolved]
  - Flushing [Not Recovered/Not Resolved]
  - Erythema [Not Recovered/Not Resolved]
  - Cold sweat [Not Recovered/Not Resolved]
